FAERS Safety Report 6840986-9 (Version None)
Quarter: 2010Q3

REPORT INFORMATION
  Report Type: 
  Country: None (occurrence: None)
  Receive Date: 20100714
  Receipt Date: 20070619
  Transmission Date: 20110219
  Serious: No
  Sender: FDA-Public Use
  Company Number: US-PFIZER INC-2007052098

PATIENT
  Sex: Female
  Weight: 68 kg

DRUGS (4)
  1. CHANTIX [Suspect]
     Indication: SMOKING CESSATION THERAPY
     Dates: start: 20070301, end: 20070401
  2. LISINOPRIL [Concomitant]
  3. ZYRTEC [Concomitant]
     Indication: HYPERSENSITIVITY
  4. VYTORIN [Concomitant]

REACTIONS (1)
  - INCREASED APPETITE [None]
